FAERS Safety Report 20011151 (Version 2)
Quarter: 2021Q4

REPORT INFORMATION
  Report Type: Spontaneous
  Country: US (occurrence: US)
  Receive Date: 20211028
  Receipt Date: 20211121
  Transmission Date: 20220304
  Serious: Yes (Other)
  Sender: FDA-Public Use
  Company Number: US-GW PHARMA-202110USGW05153

PATIENT

DRUGS (1)
  1. EPIDIOLEX [Suspect]
     Active Substance: CANNABIDIOL
     Indication: Lennox-Gastaut syndrome
     Dosage: 9.19 MG/KG/DAY, 500 MILLIGRAM, BID
     Route: 048
     Dates: start: 20210714

REACTIONS (1)
  - Weight fluctuation [Unknown]

NARRATIVE: CASE EVENT DATE: 20211001
